FAERS Safety Report 8357122-2 (Version None)
Quarter: 2012Q2

REPORT INFORMATION
  Report Type: 
  Country: None (occurrence: None)
  Receive Date: 20120514
  Receipt Date: 20120504
  Transmission Date: 20120825
  Serious: Yes (Other)
  Sender: FDA-Public Use
  Company Number: DE-BRISTOL-MYERS SQUIBB COMPANY-16583056

PATIENT
  Sex: Female

DRUGS (9)
  1. CLOTRIMAZOLE [Concomitant]
     Indication: FUNGAL INFECTION
     Route: 067
  2. METFORMIN HCL [Suspect]
     Indication: POLYCYSTIC OVARIES
     Dosage: 1 DF: 1000 (UNITS NOT PROVIDED)
  3. PROGESTERONE [Concomitant]
     Indication: POLYCYSTIC OVARIES
     Route: 048
     Dates: start: 20100912, end: 20101114
  4. LEVOTHYROXINE SODIUM [Concomitant]
     Indication: HYPOTHYROIDISM
     Route: 048
     Dates: start: 20100913, end: 20110626
  5. FOLIO [Concomitant]
     Indication: PROPHYLAXIS
     Route: 048
     Dates: start: 20100919, end: 20110404
  6. CETIRIZINE HCL [Concomitant]
     Indication: HYPERSENSITIVITY
     Route: 048
  7. METFORMIN HCL [Suspect]
     Indication: GLUCOSE TOLERANCE IMPAIRED
     Dosage: 1 DF: 1000 (UNITS NOT PROVIDED)
  8. HYDROCORTISONE ACETATE [Concomitant]
     Indication: HYPERSENSITIVITY
     Route: 003
  9. APSOMOL [Concomitant]
     Indication: BRONCHITIS
     Dates: start: 20101220, end: 20101225

REACTIONS (2)
  - PREGNANCY [None]
  - GESTATIONAL DIABETES [None]
